FAERS Safety Report 8411135 (Version 2)
Quarter: 2012Q4

REPORT INFORMATION
  Report Type: Report from Study
  Country: CA (occurrence: CA)
  Receive Date: 20120217
  Receipt Date: 20121206
  Transmission Date: 20130627
  Serious: Yes (Other)
  Sender: FDA-Public Use
  Company Number: CA-JNJFOC-20120207828

PATIENT
  Age: 56 None
  Sex: Female
  Weight: 127 kg

DRUGS (13)
  1. STELARA [Suspect]
     Indication: PSORIASIS
     Route: 058
     Dates: start: 20111026, end: 20120516
  2. LEVOFLOXACIN [Concomitant]
  3. ANTIBIOTIC CREAM [Concomitant]
     Indication: PRODUCT USED FOR UNKNOWN INDICATION
  4. SYNTHROID [Concomitant]
  5. PANTOLOC [Concomitant]
  6. NAPROSYN [Concomitant]
  7. ATACAND [Concomitant]
  8. CITALOPRAM [Concomitant]
  9. METHOTREXATE [Concomitant]
  10. FOLIC ACID [Concomitant]
  11. APO-HYDRO [Concomitant]
  12. XALATAN [Concomitant]
  13. PREDNISONE [Concomitant]

REACTIONS (2)
  - Abscess [Unknown]
  - Influenza [Recovering/Resolving]
